FAERS Safety Report 5146137-3 (Version None)
Quarter: 2006Q4

REPORT INFORMATION
  Report Type: 
  Country: None (occurrence: None)
  Receive Date: 20061108
  Receipt Date: 20060804
  Transmission Date: 20070319
  Serious: Yes (Other)
  Sender: FDA-Public Use
  Company Number: US-ROCHE-458672

PATIENT
  Age: 23 Year
  Sex: Male
  Weight: 83 kg

DRUGS (1)
  1. ACCUTANE [Suspect]
     Route: 065
     Dates: start: 19940615, end: 19941115

REACTIONS (13)
  - ABSCESS INTESTINAL [None]
  - ANAEMIA POSTOPERATIVE [None]
  - ARTHRITIS [None]
  - ARTHROPATHY [None]
  - COLITIS [None]
  - COLITIS ULCERATIVE [None]
  - DRUG DEPENDENCE [None]
  - INFLAMMATORY BOWEL DISEASE [None]
  - INTESTINAL POLYP [None]
  - PLASMACYTOSIS [None]
  - POSTOPERATIVE FEVER [None]
  - PROCTITIS ULCERATIVE [None]
  - PSEUDOPOLYP [None]
